FAERS Safety Report 5963070-5 (Version None)
Quarter: 2008Q4

REPORT INFORMATION
  Report Type: 
  Country: None (occurrence: None)
  Receive Date: 20081124
  Receipt Date: 20081111
  Transmission Date: 20090506
  Serious: Yes (Other)
  Sender: FDA-Public Use
  Company Number: US-ROCHE-596906

PATIENT
  Sex: Female

DRUGS (2)
  1. PEG-INTERFERON A-2A (RO 25-8310) [Suspect]
     Indication: DRUG USE FOR UNKNOWN INDICATION
     Dosage: PATIENT IN WEEK 5 OF THERAPY
     Route: 065
     Dates: start: 20081001
  2. RIBAVIRIN [Suspect]
     Indication: DRUG USE FOR UNKNOWN INDICATION
     Dosage: PATIENT IN WEEK 5 OF THERAPY
     Route: 065
     Dates: start: 20081001

REACTIONS (2)
  - HAEMOPTYSIS [None]
  - THROMBOSIS [None]
